FAERS Safety Report 4719542-4 (Version None)
Quarter: 2005Q3

REPORT INFORMATION
  Report Type: 
  Country: None (occurrence: None)
  Receive Date: 20050721
  Receipt Date: 20050624
  Transmission Date: 20060218
  Serious: Yes (Life-Threatening, Hospitalization)
  Sender: FDA-Public Use
  Company Number: JP-SP-2005-01232

PATIENT
  Age: 53 Year
  Sex: Male

DRUGS (9)
  1. IMMUCYST [Suspect]
     Indication: BLADDER CANCER STAGE III
     Dosage: 3 TIMES 240 MG
     Route: 043
     Dates: start: 20040129, end: 20040304
  2. IMMUCYST [Suspect]
     Dosage: 3 TIMES 240 MG
     Route: 043
     Dates: start: 20040129, end: 20040304
  3. IMMUCYST [Suspect]
     Dosage: 3 TIMES 240 MG
     Route: 043
     Dates: start: 20040129, end: 20040304
  4. LEVOFLOXACIN [Concomitant]
     Dates: start: 20040122, end: 20040129
  5. ETODOLAC [Concomitant]
     Dates: start: 20030916, end: 20031104
  6. REBAMIPIDE [Concomitant]
     Dates: start: 20031020, end: 20031104
  7. DICLOFENAC SODIUM [Concomitant]
     Route: 054
     Dates: start: 20031001, end: 20031001
  8. REBAMIPIDE [Concomitant]
     Dates: start: 20040129, end: 20040219
  9. ETODOLAC [Concomitant]
     Dates: start: 20040122, end: 20040219

REACTIONS (4)
  - CYSTITIS [None]
  - PROSTATITIS [None]
  - PYREXIA [None]
  - TUBERCULOSIS BLADDER [None]
